FAERS Safety Report 5587201-4 (Version None)
Quarter: 2008Q1

REPORT INFORMATION
  Report Type: 
  Country: None (occurrence: None)
  Receive Date: 20080110
  Receipt Date: 20070207
  Transmission Date: 20080703
  Serious: No
  Sender: FDA-Public Use
  Company Number: US-BRISTOL-MYERS SQUIBB COMPANY-13671870

PATIENT
  Sex: Male

DRUGS (1)
  1. CARDIOLITE [Suspect]

REACTIONS (3)
  - CHILLS [None]
  - DIZZINESS [None]
  - FLUSHING [None]
